FAERS Safety Report 11005649 (Version 2)
Quarter: 2019Q1

REPORT INFORMATION
  Report Type: Spontaneous
  Country: US (occurrence: US)
  Receive Date: 20150409
  Receipt Date: 20190325
  Transmission Date: 20190417
  Serious: No
  Sender: FDA-Public Use
  Company Number: US-ALLERGAN-1409143US

PATIENT
  Sex: Female

DRUGS (2)
  1. AZOPT [Concomitant]
     Active Substance: BRINZOLAMIDE
     Dosage: UNK, BID
     Route: 047
  2. LUMIGAN [Suspect]
     Active Substance: BIMATOPROST
     Indication: PRODUCT USED FOR UNKNOWN INDICATION
     Dosage: 1 GTT, QD
     Route: 047
     Dates: start: 2013

REACTIONS (5)
  - Eyelid disorder [Unknown]
  - Retinal disorder [Unknown]
  - Headache [Unknown]
  - Intraocular pressure increased [Unknown]
  - Drug ineffective [Unknown]
